FAERS Safety Report 5028728-3 (Version None)
Quarter: 2006Q2

REPORT INFORMATION
  Report Type: 
  Country: None (occurrence: None)
  Receive Date: 20060619
  Receipt Date: 20060607
  Transmission Date: 20061013
  Serious: Yes (Hospitalization)
  Sender: FDA-Public Use
  Company Number: CA-BRISTOL-MYERS SQUIBB COMPANY-13404207

PATIENT
  Age: 69 Year
  Sex: Male
  Weight: 57 kg

DRUGS (13)
  1. CARBOPLATIN [Suspect]
     Indication: NON-SMALL CELL LUNG CANCER
     Route: 042
     Dates: start: 20060328, end: 20060328
  2. PACLITAXEL [Suspect]
     Indication: NON-SMALL CELL LUNG CANCER
     Route: 042
     Dates: start: 20060328, end: 20060328
  3. STATEX [Concomitant]
     Route: 048
     Dates: start: 20060206
  4. MOTRIN [Concomitant]
     Route: 048
     Dates: start: 20060104
  5. COLACE [Concomitant]
     Route: 048
     Dates: start: 20060202
  6. MILK OF MAGNESIA TAB [Concomitant]
     Route: 048
     Dates: start: 20060202
  7. TRUSOPT [Concomitant]
     Dates: start: 20030201
  8. KETOROLAC [Concomitant]
     Dates: start: 20030201
  9. PREDNISOLONE ACETATE [Concomitant]
     Dates: start: 20030201
  10. PAMIDRONATE DISODIUM [Concomitant]
     Route: 042
     Dates: start: 20060209
  11. MS CONTIN [Concomitant]
     Route: 048
     Dates: start: 20060213
  12. HERBAL PREPARATION [Concomitant]
     Route: 048
     Dates: start: 20030101
  13. STRESSTABS [Concomitant]
     Route: 048
     Dates: start: 20060308

REACTIONS (1)
  - DEHYDRATION [None]
